FAERS Safety Report 23523927 (Version 1)
Quarter: 2024Q1

REPORT INFORMATION
  Report Type: Report from Study
  Country: US (occurrence: US)
  Receive Date: 20240214
  Receipt Date: 20240214
  Transmission Date: 20240409
  Serious: Yes (Hospitalization)
  Sender: FDA-Public Use
  Company Number: US-ABBVIE-5628113

PATIENT
  Sex: Male

DRUGS (2)
  1. HUMIRA [Suspect]
     Active Substance: ADALIMUMAB
     Indication: Psoriatic arthropathy
     Dosage: START DATE: MORE THAN 8 YEARS
     Route: 058
  2. AUGMENTIN [Suspect]
     Active Substance: AMOXICILLIN\CLAVULANATE POTASSIUM
     Indication: Product used for unknown indication
     Route: 065

REACTIONS (9)
  - Emergency care [Unknown]
  - Adverse reaction [Unknown]
  - Pyrexia [Unknown]
  - Vomiting [Unknown]
  - Clostridium difficile infection [Unknown]
  - Feeling abnormal [Unknown]
  - Polyp [Unknown]
  - White blood cell count increased [Unknown]
  - Unevaluable event [Unknown]

NARRATIVE: CASE EVENT DATE: 20240101
